FAERS Safety Report 14821175 (Version 1)
Quarter: 2018Q2

REPORT INFORMATION
  Report Type: Spontaneous
  Country: GB (occurrence: GB)
  Receive Date: 20180427
  Receipt Date: 20180427
  Transmission Date: 20180711
  Serious: Yes (Other)
  Sender: FDA-Public Use
  Company Number: GB-BAYER-2018-078168

PATIENT
  Age: 37 Year
  Sex: Female
  Weight: 101.6 kg

DRUGS (4)
  1. LEVOTHYROXINE SODIUM. [Concomitant]
     Active Substance: LEVOTHYROXINE SODIUM
  2. MIRENA [Suspect]
     Active Substance: LEVONORGESTREL
     Indication: MENORRHAGIA
     Dosage: 20 MCG/24HR, CONT
     Route: 015
  3. CITALOPRAM HYDROCHLORIDE [Concomitant]
     Active Substance: CITALOPRAM HYDROCHLORIDE
  4. MIRENA [Suspect]
     Active Substance: LEVONORGESTREL

REACTIONS (12)
  - Arthralgia [Unknown]
  - Fluid retention [Unknown]
  - Abdominal pain lower [Unknown]
  - Nausea [Unknown]
  - Migraine [Unknown]
  - Abdominal distension [Unknown]
  - Back pain [Unknown]
  - Vaginal haemorrhage [Unknown]
  - Irritability [Unknown]
  - Mood swings [Unknown]
  - Headache [Unknown]
  - Weight increased [Unknown]

NARRATIVE: CASE EVENT DATE: 20180131
